FAERS Safety Report 4649264-X (Version None)
Quarter: 2005Q2

REPORT INFORMATION
  Report Type: 
  Country: None (occurrence: None)
  Receive Date: 20050429
  Receipt Date: 20041111
  Transmission Date: 20051028
  Serious: Yes (Hospitalization, Disabling, Other)
  Sender: FDA-Public Use
  Company Number: US-MERCK-0411USA02237

PATIENT
  Age: 49 Year
  Sex: Male
  Weight: 99 kg

DRUGS (16)
  1. VIOXX [Suspect]
     Indication: NECK PAIN
     Route: 048
     Dates: start: 20010626, end: 20040930
  2. VIOXX [Suspect]
     Indication: OSTEOARTHRITIS
     Route: 048
     Dates: start: 20010626, end: 20040930
  3. METHYLPREDNISOLONE [Concomitant]
     Route: 065
  4. BEXTRA [Concomitant]
     Route: 065
  5. COLCHICINE [Concomitant]
     Route: 065
  6. NORVASC [Concomitant]
     Route: 065
  7. TRIAMTERENE [Concomitant]
     Route: 065
  8. ALLOPURINOL [Concomitant]
     Route: 065
  9. METHOCARBAMOL [Concomitant]
     Route: 065
  10. INDOMETHACIN [Concomitant]
     Route: 065
  11. PLAVIX [Concomitant]
     Route: 065
  12. PROTONIX [Concomitant]
     Route: 065
  13. HYDROCODONE BITARTRATE [Concomitant]
     Route: 065
  14. ALTACE [Concomitant]
     Route: 065
  15. TOPROL-XL [Concomitant]
     Route: 065
  16. NITROQUICK [Concomitant]
     Route: 065

REACTIONS (8)
  - BURSITIS [None]
  - CERVICOBRACHIAL SYNDROME [None]
  - CONDYLOMA ACUMINATUM [None]
  - CORONARY ARTERY OCCLUSION [None]
  - DIARRHOEA [None]
  - GOUT [None]
  - HYPERTENSION [None]
  - MYOCARDIAL INFARCTION [None]
